FAERS Safety Report 7532395 (Version 2)
Quarter: 2013Q2

REPORT INFORMATION
  Report Type: Spontaneous
  Country: US (occurrence: US)
  Receive Date: 20100806
  Receipt Date: 20130508
  Transmission Date: 20140414
  Serious: Yes (Hospitalization, Other)
  Sender: FDA-Public Use
  Company Number: US-PFIZER INC-2008095646

PATIENT
  Age: 27 Year
  Sex: Male

DRUGS (1)
  1. DILANTIN-125 [Suspect]
     Indication: CONVULSION
     Dosage: 300 MG, 1X/DAY, (EVERY NIGHT AT BEDTIME)
     Route: 048
     Dates: start: 20000212

REACTIONS (1)
  - Stevens-Johnson syndrome [Recovered/Resolved]
